FAERS Safety Report 9753389 (Version 1)
Quarter: 2013Q4

REPORT INFORMATION
  Report Type: Spontaneous
  Country: US (occurrence: US)
  Receive Date: 20131213
  Receipt Date: 20131213
  Transmission Date: 20140711
  Serious: No
  Sender: FDA-Public Use
  Company Number: US-TEVA-406103USA

PATIENT
  Sex: Female
  Weight: 125.3 kg

DRUGS (5)
  1. PARAGARD 380A [Suspect]
     Indication: CONTRACEPTION
     Route: 015
     Dates: start: 20130408
  2. ADDERALL [Concomitant]
  3. KETOROLAC [Concomitant]
  4. RISPERIDONE [Concomitant]
  5. XARELTO [Concomitant]

REACTIONS (1)
  - Device expulsion [Not Recovered/Not Resolved]
